FAERS Safety Report 24032618 (Version 1)
Quarter: 2024Q3

REPORT INFORMATION
  Report Type: Spontaneous
  Country: US (occurrence: US)
  Receive Date: 20240701
  Receipt Date: 20240701
  Transmission Date: 20241017
  Serious: Yes (Other)
  Sender: BRISTOL MYERS SQUIBB
  Company Number: US-BRISTOL-MYERS SQUIBB COMPANY-2024-103849

PATIENT
  Age: 81 Year
  Sex: Female
  Weight: 52.62 kg

DRUGS (1)
  1. LENALIDOMIDE [Suspect]
     Active Substance: LENALIDOMIDE
     Indication: Follicular lymphoma stage III
     Route: 048
     Dates: start: 20240118

REACTIONS (1)
  - Malignant neoplasm progression [Unknown]
